FAERS Safety Report 6676098-7 (Version None)
Quarter: 2010Q2

REPORT INFORMATION
  Report Type: 
  Country: None (occurrence: None)
  Receive Date: 20100412
  Receipt Date: 20100331
  Transmission Date: 20101027
  Serious: Yes (Other)
  Sender: FDA-Public Use
  Company Number: JP-PFIZER INC-2010015291

PATIENT
  Age: 62 Year
  Sex: Female

DRUGS (1)
  1. UNASYN [Suspect]
     Indication: PNEUMONIA ASPIRATION
     Dosage: 3 G, 2X/DAY
     Route: 042
     Dates: start: 20100109, end: 20100112

REACTIONS (6)
  - DRUG ERUPTION [None]
  - ERYTHEMA [None]
  - GENERALISED ERYTHEMA [None]
  - HEPATIC FUNCTION ABNORMAL [None]
  - PRURIGO [None]
  - PRURITUS [None]
